FAERS Safety Report 17865377 (Version 2)
Quarter: 2020Q2

REPORT INFORMATION
  Report Type: Spontaneous
  Country: BE (occurrence: BE)
  Receive Date: 20200605
  Receipt Date: 20200610
  Transmission Date: 20200714
  Serious: Yes (Other)
  Sender: FDA-Public Use
  Company Number: NVSC2020BE154529

PATIENT
  Age: 55 Year
  Sex: Female

DRUGS (2)
  1. YMEA [Concomitant]
     Indication: PRODUCT USED FOR UNKNOWN INDICATION
     Dosage: UNK
     Route: 065
  2. ZOLPIDEM [Suspect]
     Active Substance: ZOLPIDEM TARTRATE
     Indication: SLEEP DISORDER
     Dosage: 10 MG
     Route: 065

REACTIONS (6)
  - Nasal congestion [Unknown]
  - Menstrual disorder [Unknown]
  - Insomnia [Unknown]
  - Dependence [Unknown]
  - Malaise [Unknown]
  - Drug ineffective [Unknown]
